FAERS Safety Report 25968430 (Version 1)
Quarter: 2025Q4

REPORT INFORMATION
  Report Type: Spontaneous
  Country: EU (occurrence: EU)
  Receive Date: 20251028
  Receipt Date: 20251028
  Transmission Date: 20260117
  Serious: Yes (Other)
  Sender: ELI LILLY AND COMPANY
  Company Number: EU-ELI_LILLY_AND_COMPANY-DE202510024780

PATIENT
  Age: 31 Year
  Sex: Female
  Weight: 50 kg

DRUGS (2)
  1. OLUMIANT [Suspect]
     Active Substance: BARICITINIB
     Indication: Rheumatoid arthritis
     Dosage: 4 MG, DAILY
     Route: 048
     Dates: start: 202011
  2. ETORICOXIB [Concomitant]
     Active Substance: ETORICOXIB
     Indication: Pain
     Dosage: UNK, PRN (AS NEEDED)
     Route: 065

REACTIONS (2)
  - Syphilis [Recovered/Resolved]
  - Uveitis [Recovered/Resolved]

NARRATIVE: CASE EVENT DATE: 20211001
